FAERS Safety Report 8678102 (Version 23)
Quarter: 2015Q3

REPORT INFORMATION
  Report Type: Report from Study
  Country: CA (occurrence: CA)
  Receive Date: 20120723
  Receipt Date: 20150925
  Transmission Date: 20151125
  Serious: Yes (Hospitalization, Other)
  Sender: FDA-Public Use
  Company Number: CA-ASTRAZENECA-2012SE48671

PATIENT
  Age: 18567 Day
  Sex: Female
  Weight: 75.8 kg

DRUGS (104)
  1. CAPRELSA [Interacting]
     Active Substance: VANDETANIB
     Indication: MEDULLARY THYROID CANCER
     Route: 048
     Dates: start: 20120618, end: 20130920
  2. CAPRELSA [Interacting]
     Active Substance: VANDETANIB
     Indication: MEDULLARY THYROID CANCER
     Route: 048
     Dates: start: 20140106
  3. DEPO-MEDROL [Concomitant]
     Active Substance: METHYLPREDNISOLONE ACETATE
     Route: 014
  4. TYLENOL WITH CODEINE [Concomitant]
     Active Substance: ACETAMINOPHEN\CODEINE PHOSPHATE
  5. OXYNEO [Concomitant]
     Active Substance: OXYCODONE
  6. APO-CYCLOBENZAPRINE [Concomitant]
     Active Substance: CYCLOBENZAPRINE
     Dosage: 10 MG TWICE DAILY AS NEEDED
  7. APO-FUROSEMIDE [Concomitant]
  8. APO-FUROSEMIDE [Concomitant]
  9. VITAMIN B12 [Concomitant]
     Active Substance: CYANOCOBALAMIN
  10. EFFEXOR [Concomitant]
     Active Substance: VENLAFAXINE HYDROCHLORIDE
  11. ALLEGRA [Concomitant]
     Active Substance: FEXOFENADINE HYDROCHLORIDE
     Dosage: PRN
  12. TRYPTOPHAN, L- [Concomitant]
     Dosage: 1 GAM, 2 TABS QHS
  13. ADVAIR HFA [Concomitant]
     Active Substance: FLUTICASONE PROPIONATE\SALMETEROL XINAFOATE
  14. CAPRELSA [Interacting]
     Active Substance: VANDETANIB
     Indication: MEDULLARY THYROID CANCER
     Route: 048
     Dates: start: 20120618, end: 20140328
  15. VENLAFAXINE XR [Interacting]
     Active Substance: VENLAFAXINE HYDROCHLORIDE
     Indication: ANTIDEPRESSANT THERAPY
     Route: 048
  16. MAXALT [Concomitant]
     Active Substance: RIZATRIPTAN BENZOATE
  17. BOTOX [Concomitant]
     Active Substance: ONABOTULINUMTOXINA
     Dosage: EVERY THREE MONTHS
     Route: 030
  18. RATIO-TRYPTOPHAN [Concomitant]
  19. TYLENOL WITH CODEINE [Concomitant]
     Active Substance: ACETAMINOPHEN\CODEINE PHOSPHATE
  20. OXYNEO [Concomitant]
     Active Substance: OXYCODONE
  21. OXYNEO [Concomitant]
     Active Substance: OXYCODONE
     Dates: start: 20121130
  22. ATENOLOL. [Concomitant]
     Active Substance: ATENOLOL
     Dates: end: 20121102
  23. DULCOLAX [Concomitant]
     Active Substance: BISACODYL OR DOCUSATE SODIUM
     Dosage: PRN
  24. TYLENOL WITH CODEINE [Concomitant]
     Active Substance: ACETAMINOPHEN\CODEINE PHOSPHATE
  25. ACETAMINOPHEN + CODEINE [Concomitant]
  26. MAGNESIUM [Concomitant]
     Active Substance: MAGNESIUM
     Route: 048
  27. PSEUDOEPHEDRINE [Concomitant]
     Active Substance: PSEUDOEPHEDRINE
  28. FUROSEMIDE. [Concomitant]
     Active Substance: FUROSEMIDE
     Dosage: 40 MG QAM
  29. CAPRELSA [Interacting]
     Active Substance: VANDETANIB
     Indication: MEDULLARY THYROID CANCER
     Route: 048
     Dates: start: 20120727, end: 20120823
  30. CAPRELSA [Interacting]
     Active Substance: VANDETANIB
     Indication: MEDULLARY THYROID CANCER
     Route: 048
     Dates: start: 20120618, end: 20121109
  31. CAPRELSA [Interacting]
     Active Substance: VANDETANIB
     Indication: MEDULLARY THYROID CANCER
     Route: 048
     Dates: start: 20120618, end: 20130906
  32. IMOVANE [Concomitant]
     Active Substance: ZOPICLONE
  33. ROBAXACET [Concomitant]
     Active Substance: ACETAMINOPHEN\METHOCARBAMOL
  34. FOLIC ACID. [Concomitant]
     Active Substance: FOLIC ACID
  35. LYRICA [Concomitant]
     Active Substance: PREGABALIN
     Route: 048
  36. EFFEXOR [Concomitant]
     Active Substance: VENLAFAXINE HYDROCHLORIDE
     Dosage: 150 MG
  37. PRISTIQ EXTENDED RELEASE [Concomitant]
     Active Substance: DESVENLAFAXINE SUCCINATE
     Dosage: 100 MG AC
     Route: 048
  38. CALCIUM [Concomitant]
     Active Substance: CALCIUM
     Route: 048
  39. CAPRELSA [Interacting]
     Active Substance: VANDETANIB
     Indication: MEDULLARY THYROID CANCER
     Route: 048
     Dates: start: 20121123, end: 20130219
  40. CAPRELSA [Interacting]
     Active Substance: VANDETANIB
     Indication: MEDULLARY THYROID CANCER
     Route: 048
     Dates: start: 201210
  41. CAPRELSA [Interacting]
     Active Substance: VANDETANIB
     Indication: MEDULLARY THYROID CANCER
     Route: 048
     Dates: start: 20141102
  42. CAPRELSA [Interacting]
     Active Substance: VANDETANIB
     Indication: MEDULLARY THYROID CANCER
     Route: 048
     Dates: start: 20120618, end: 20150812
  43. NAROPIN [Interacting]
     Active Substance: ROPIVACAINE HYDROCHLORIDE
  44. AMITRIPTYLINE HCL [Concomitant]
     Active Substance: AMITRIPTYLINE
  45. IMOVANE [Concomitant]
     Active Substance: ZOPICLONE
  46. IMOVANE [Concomitant]
     Active Substance: ZOPICLONE
  47. VENTOLIN [Concomitant]
     Active Substance: ALBUTEROL SULFATE
     Dosage: 100 MCG DAILY AS NEEDED
     Dates: end: 20121102
  48. PANTOPRAZOLE [Concomitant]
     Active Substance: PANTOPRAZOLE SODIUM
  49. ELAVIL [Concomitant]
     Active Substance: AMITRIPTYLINE HYDROCHLORIDE
  50. POTASSIUM [Concomitant]
     Active Substance: POTASSIUM
     Route: 048
  51. CYANOCOBALAMIN. [Concomitant]
     Active Substance: CYANOCOBALAMIN
  52. AVELOX [Concomitant]
     Active Substance: MOXIFLOXACIN HYDROCHLORIDE
     Indication: PNEUMONIA
     Route: 048
  53. SULFAMETHOXAZOLE/TRIMETHOPRIN [Concomitant]
     Indication: PNEUMONIA
     Dosage: 400/80 MG BID
  54. CAPRELSA [Suspect]
     Active Substance: VANDETANIB
     Indication: MEDULLARY THYROID CANCER
     Route: 048
     Dates: start: 20120618, end: 20120703
  55. NAROPIN [Interacting]
     Active Substance: ROPIVACAINE HYDROCHLORIDE
     Route: 051
  56. PROCHLORPERAZINE. [Concomitant]
     Active Substance: PROCHLORPERAZINE
     Dosage: 5 PM, AS REQUIRED
     Route: 048
  57. APO-FUROSEMIDE [Concomitant]
  58. BENADRYL [Concomitant]
     Active Substance: DIPHENHYDRAMINE HYDROCHLORIDE
  59. FUSIDIC ACID [Concomitant]
     Active Substance: FUSIDIC ACID
  60. EFFEXOR [Concomitant]
     Active Substance: VENLAFAXINE HYDROCHLORIDE
  61. ALLEGRA [Concomitant]
     Active Substance: FEXOFENADINE HYDROCHLORIDE
  62. L-TRYPTOPHAN [Concomitant]
     Active Substance: TRYPTOPHAN
  63. CAPRELSA [Interacting]
     Active Substance: VANDETANIB
     Indication: MEDULLARY THYROID CANCER
     Route: 048
     Dates: start: 20120918
  64. CAPRELSA [Interacting]
     Active Substance: VANDETANIB
     Indication: MEDULLARY THYROID CANCER
     Route: 048
     Dates: start: 20120618
  65. CAPRELSA [Interacting]
     Active Substance: VANDETANIB
     Indication: MEDULLARY THYROID CANCER
     Route: 048
     Dates: start: 20150226
  66. SEROQUEL [Interacting]
     Active Substance: QUETIAPINE FUMARATE
     Indication: MENTAL DISORDER
     Route: 048
  67. VENLAFAXINE XR [Interacting]
     Active Substance: VENLAFAXINE HYDROCHLORIDE
     Indication: ANTIDEPRESSANT THERAPY
     Route: 048
  68. BENADRYL [Concomitant]
     Active Substance: DIPHENHYDRAMINE HYDROCHLORIDE
  69. ELTROXIN [Concomitant]
     Active Substance: LEVOTHYROXINE
  70. SPIRONOLACTONE. [Concomitant]
     Active Substance: SPIRONOLACTONE
  71. STEMETIL [Concomitant]
     Active Substance: PROCHLORPERAZINE MALEATE
     Dates: start: 20121102
  72. CALCIUM CARBONATE. [Concomitant]
     Active Substance: CALCIUM CARBONATE
  73. SYNTHROID [Concomitant]
     Active Substance: LEVOTHYROXINE SODIUM
  74. PREGABALIN. [Concomitant]
     Active Substance: PREGABALIN
     Route: 048
  75. RIZATRIPTAN BENZOATE. [Concomitant]
     Active Substance: RIZATRIPTAN BENZOATE
  76. SALBUTAMOL [Concomitant]
     Active Substance: ALBUTEROL
  77. CAPRELSA [Interacting]
     Active Substance: VANDETANIB
     Indication: MEDULLARY THYROID CANCER
     Route: 048
     Dates: end: 20150212
  78. VENLAFAXINE XR [Interacting]
     Active Substance: VENLAFAXINE HYDROCHLORIDE
     Indication: ANTIDEPRESSANT THERAPY
     Route: 048
  79. IMOVANE [Concomitant]
     Active Substance: ZOPICLONE
  80. TRAZODONE [Concomitant]
     Active Substance: TRAZODONE HYDROCHLORIDE
     Route: 048
  81. PROCHLORPERAZINE. [Concomitant]
     Active Substance: PROCHLORPERAZINE
     Dosage: 5 MG 3 TIMES PER DAY AS NEEDED
  82. APO-FUROSEMIDE [Concomitant]
  83. ROBAXACET [Concomitant]
     Active Substance: ACETAMINOPHEN\METHOCARBAMOL
  84. TRIPROLIDINE, PSEUDOEPHEDRINE [Concomitant]
  85. CODEINE [Concomitant]
     Active Substance: CODEINE
  86. SPIRIVA [Concomitant]
     Active Substance: TIOTROPIUM BROMIDE MONOHYDRATE
  87. VITAMIN D3 [Concomitant]
     Active Substance: CHOLECALCIFEROL
     Route: 048
  88. PROCHLORPERAZINE MALEATE. [Concomitant]
     Active Substance: PROCHLORPERAZINE MALEATE
     Dosage: 5 MG TID PRN
     Route: 048
  89. LAMISIL [Concomitant]
     Active Substance: TERBINAFINE HYDROCHLORIDE
  90. FUCIDIN [Concomitant]
     Active Substance: FUSIDIC ACID
     Route: 061
  91. CAPRELSA [Interacting]
     Active Substance: VANDETANIB
     Indication: MEDULLARY THYROID CANCER
     Route: 048
     Dates: end: 20130328
  92. CAPRELSA [Interacting]
     Active Substance: VANDETANIB
     Indication: MEDULLARY THYROID CANCER
     Route: 048
     Dates: start: 20120618, end: 20130712
  93. CAPRELSA [Interacting]
     Active Substance: VANDETANIB
     Indication: MEDULLARY THYROID CANCER
     Route: 048
     Dates: start: 20150820
  94. SEROQUEL [Interacting]
     Active Substance: QUETIAPINE FUMARATE
     Indication: MENTAL DISORDER
     Route: 048
  95. SYMBICORT [Interacting]
     Active Substance: BUDESONIDE\FORMOTEROL FUMARATE DIHYDRATE
     Dosage: 200 MCG 2 PUFFS, BID
     Route: 055
  96. CYCLOBENZAPRINE [Concomitant]
     Active Substance: CYCLOBENZAPRINE
  97. DEPO-MEDROL [Concomitant]
     Active Substance: METHYLPREDNISOLONE ACETATE
  98. PROCHLORPERAZINE. [Concomitant]
     Active Substance: PROCHLORPERAZINE
     Dosage: 10 MG 3 TIMES PER DAY AS NEEDED
  99. TYLENOL WITH CODEINE [Concomitant]
     Active Substance: ACETAMINOPHEN\CODEINE PHOSPHATE
  100. CLINDAMYCIN [Concomitant]
     Active Substance: CLINDAMYCIN\CLINDAMYCIN PHOSPHATE
  101. STEMETIL [Concomitant]
     Active Substance: PROCHLORPERAZINE MALEATE
     Dosage: PRN
  102. MAGNESIUM [Concomitant]
     Active Substance: MAGNESIUM
     Route: 048
  103. OXYCODONE [Concomitant]
     Active Substance: OXYCODONE
  104. ATROVENT [Concomitant]
     Active Substance: IPRATROPIUM BROMIDE

REACTIONS (23)
  - Oropharyngeal pain [Not Recovered/Not Resolved]
  - Cystitis [Unknown]
  - Pneumonia [Not Recovered/Not Resolved]
  - Breast abscess [Recovering/Resolving]
  - Fall [Not Recovered/Not Resolved]
  - Abdominal pain upper [Not Recovered/Not Resolved]
  - Sinusitis [Recovered/Resolved]
  - Fatigue [Not Recovered/Not Resolved]
  - Nausea [Not Recovered/Not Resolved]
  - Musculoskeletal pain [Not Recovered/Not Resolved]
  - Pain [Unknown]
  - Cough [Not Recovered/Not Resolved]
  - Nasopharyngitis [Not Recovered/Not Resolved]
  - Back pain [Not Recovered/Not Resolved]
  - Impaired healing [Not Recovered/Not Resolved]
  - Drug interaction [Recovered/Resolved]
  - Electrocardiogram QT prolonged [Not Recovered/Not Resolved]
  - Rash [Recovering/Resolving]
  - Neck pain [Not Recovered/Not Resolved]
  - Pyrexia [Unknown]
  - Lower respiratory tract infection [Not Recovered/Not Resolved]
  - Electrocardiogram abnormal [Recovered/Resolved]
  - Wound infection [Not Recovered/Not Resolved]

NARRATIVE: CASE EVENT DATE: 20120703
